FAERS Safety Report 25594608 (Version 1)
Quarter: 2025Q3

REPORT INFORMATION
  Report Type: Report from Study
  Country: IN (occurrence: IN)
  Receive Date: 20250723
  Receipt Date: 20250723
  Transmission Date: 20251021
  Serious: Yes (Death, Other)
  Sender: CIPLA
  Company Number: IN-CIPLA (EU) LIMITED-2025IN08749

PATIENT

DRUGS (42)
  1. ACYCLOVIR [Suspect]
     Active Substance: ACYCLOVIR
     Indication: Varicella
     Dosage: 300 MILLIGRAM, TID (TDS) - 3/4TH TAB FOR 3 TIMES A DAY
     Route: 048
     Dates: start: 20250224, end: 20250705
  2. ACYCLOVIR [Suspect]
     Active Substance: ACYCLOVIR
     Indication: Prophylaxis
  3. ALLOPURINOL [Concomitant]
     Active Substance: ALLOPURINOL
     Indication: Product used for unknown indication
     Route: 065
  4. AMIKACIN [Concomitant]
     Active Substance: AMIKACIN
     Indication: Product used for unknown indication
     Route: 065
  5. SULFAMETHOXAZOLE\TRIMETHOPRIM [Concomitant]
     Active Substance: SULFAMETHOXAZOLE\TRIMETHOPRIM
     Indication: Product used for unknown indication
     Route: 065
  6. AVIBACTAM SODIUM\CEFTAZIDIME [Concomitant]
     Active Substance: AVIBACTAM SODIUM\CEFTAZIDIME
     Indication: Product used for unknown indication
     Route: 065
  7. ENVAS [Concomitant]
     Indication: Product used for unknown indication
     Route: 065
  8. ACETAMINOPHEN [Concomitant]
     Active Substance: ACETAMINOPHEN
     Indication: Product used for unknown indication
     Route: 065
  9. GELUSIL [ALUMINIUM MAGNESIUM SILICATE] [Concomitant]
     Indication: Product used for unknown indication
     Route: 065
  10. GRANISETRON [Concomitant]
     Active Substance: GRANISETRON
     Indication: Acute myeloid leukaemia
     Route: 065
  11. GRANISETRON [Concomitant]
     Active Substance: GRANISETRON
     Route: 065
  12. GRANISETRON [Concomitant]
     Active Substance: GRANISETRON
     Dosage: 1.1 MILLIGRAM, BID (1.1 MG - 7 AM, 7PM (20-APR) HEIGHT: 147.5 CM, WEIGHT: 28.3 KG, BSA: 1.07 M2 - PO
     Route: 065
  13. GRANISETRON [Concomitant]
     Active Substance: GRANISETRON
     Dosage: 1.1 MILLIGRAM, BID (1.1 MG - 7 AM, 7PM (22-APR) HEIGHT: 147.5 CM, WEIGHT: 28.3 KG, BSA: 1.07 M2 - PO
     Route: 065
  14. GRANISETRON [Concomitant]
     Active Substance: GRANISETRON
     Dosage: 1.1 MILLIGRAM, BID (1.1 MG - 7 AM, 7PM (24-APR) HEIGHT: 147.5 CM, WEIGHT: 28.3 KG, BSA: 1.07 M2 - PO
     Route: 065
  15. GRANISETRON [Concomitant]
     Active Substance: GRANISETRON
     Route: 065
  16. GRANISETRON [Concomitant]
     Active Substance: GRANISETRON
     Route: 065
  17. GRANISETRON [Concomitant]
     Active Substance: GRANISETRON
     Route: 065
  18. CYTARABINE [Concomitant]
     Active Substance: CYTARABINE
     Indication: Acute myeloid leukaemia
     Route: 065
  19. CYTARABINE [Concomitant]
     Active Substance: CYTARABINE
     Route: 065
  20. CYTARABINE [Concomitant]
     Active Substance: CYTARABINE
     Route: 065
  21. CYTARABINE [Concomitant]
     Active Substance: CYTARABINE
     Route: 065
  22. CYTARABINE [Concomitant]
     Active Substance: CYTARABINE
     Route: 065
  23. CYTARABINE [Concomitant]
     Active Substance: CYTARABINE
     Dosage: 3210 MG - 7 AM, 7PM (20-APR) HEIGHT: 147.5 CM, WEIGHT: 28.3 KG, BSA: 1.07 M2 - POST CONSOLIDATION I
     Route: 065
  24. CYTARABINE [Concomitant]
     Active Substance: CYTARABINE
     Dosage: 3210 MG - 7 AM, 7PM (22-APR) HEIGHT: 147.5 CM, WEIGHT: 28.3 KG, BSA: 1.07 M2 - POST CONSOLIDATION I
     Route: 065
  25. CYTARABINE [Concomitant]
     Active Substance: CYTARABINE
     Dosage: 3210 MG - 7 AM, 7PM (24-APR) HEIGHT: 147.5 CM, WEIGHT: 28.3 KG, BSA: 1.07 M2 - POST CONSOLIDATION I
     Route: 065
  26. CYTARABINE [Concomitant]
     Active Substance: CYTARABINE
     Route: 065
  27. CYTARABINE [Concomitant]
     Active Substance: CYTARABINE
     Route: 065
  28. CYTARABINE [Concomitant]
     Active Substance: CYTARABINE
     Route: 065
  29. CYTARABINE [Concomitant]
     Active Substance: CYTARABINE
     Route: 065
  30. DAUNORUBICIN [Concomitant]
     Active Substance: DAUNORUBICIN
     Indication: Acute myeloid leukaemia
     Route: 065
  31. VORICONAZOLE [Concomitant]
     Active Substance: VORICONAZOLE
     Indication: Acute myeloid leukaemia
     Route: 065
  32. VORICONAZOLE [Concomitant]
     Active Substance: VORICONAZOLE
     Route: 065
  33. METHOTREXATE [Concomitant]
     Active Substance: METHOTREXATE
     Indication: Acute myeloid leukaemia
     Route: 065
  34. METHOTREXATE [Concomitant]
     Active Substance: METHOTREXATE
     Route: 065
  35. HYDROCORTISONE [Concomitant]
     Active Substance: HYDROCORTISONE
     Indication: Acute myeloid leukaemia
     Route: 065
  36. HYDROCORTISONE [Concomitant]
     Active Substance: HYDROCORTISONE
     Route: 065
  37. HYDROCORTISONE [Concomitant]
     Active Substance: HYDROCORTISONE
     Route: 065
  38. HYDROCORTISONE [Concomitant]
     Active Substance: HYDROCORTISONE
     Route: 065
  39. HYDROCORTISONE [Concomitant]
     Active Substance: HYDROCORTISONE
     Route: 065
  40. HYDROCORTISONE [Concomitant]
     Active Substance: HYDROCORTISONE
     Route: 065
  41. ETOPOSIDE [Concomitant]
     Active Substance: ETOPOSIDE
     Indication: Acute myeloid leukaemia
     Route: 065
  42. MERCAPTOPURINE [Concomitant]
     Active Substance: MERCAPTOPURINE
     Indication: Product used for unknown indication
     Route: 065

REACTIONS (5)
  - Septic shock [Fatal]
  - Shock [Fatal]
  - Febrile neutropenia [Unknown]
  - Septic cardiomyopathy [Unknown]
  - Gastroenteritis [Unknown]

NARRATIVE: CASE EVENT DATE: 20250101
